FAERS Safety Report 14115135 (Version 6)
Quarter: 2018Q1

REPORT INFORMATION
  Report Type: Spontaneous
  Country: US (occurrence: US)
  Receive Date: 20171023
  Receipt Date: 20180129
  Transmission Date: 20180508
  Serious: Yes (Hospitalization, Other)
  Sender: FDA-Public Use
  Company Number: US-PFIZER INC-2017454299

PATIENT
  Age: 76 Year
  Sex: Female
  Weight: 54 kg

DRUGS (6)
  1. IBRANCE [Suspect]
     Active Substance: PALBOCICLIB
     Indication: BREAST CANCER METASTATIC
     Dosage: 125 MG, CYCLIC (ONCE A DAY FOR 3 WEEKS AND OFF 1 WEEK)
     Dates: start: 20171002, end: 20171016
  2. XGEVA [Concomitant]
     Active Substance: DENOSUMAB
     Dosage: UNK
  3. IBRANCE [Suspect]
     Active Substance: PALBOCICLIB
     Dosage: UNK
     Dates: start: 20180101
  4. IBRANCE [Suspect]
     Active Substance: PALBOCICLIB
     Dosage: 125 MG, DAILY
     Route: 048
     Dates: start: 20171002, end: 20171015
  5. FASLODEX [Concomitant]
     Active Substance: FULVESTRANT
     Dosage: UNK
     Dates: start: 20171002
  6. FASLODEX [Concomitant]
     Active Substance: FULVESTRANT
     Dosage: UNK, MONTHLY (SLOTS)

REACTIONS (16)
  - White blood cell count decreased [Not Recovered/Not Resolved]
  - Blood blister [Recovered/Resolved]
  - Pyrexia [Recovered/Resolved]
  - Red cell distribution width increased [Unknown]
  - Dry mouth [Recovered/Resolved]
  - Rash [Recovered/Resolved]
  - Haemoglobin decreased [Unknown]
  - Gait disturbance [Unknown]
  - Malaise [Recovered/Resolved]
  - Erythema [Unknown]
  - Cardiac failure congestive [Recovered/Resolved with Sequelae]
  - Fatigue [Recovered/Resolved]
  - Red blood cell count decreased [Unknown]
  - Nasopharyngitis [Unknown]
  - Thrombocytopenia [Recovered/Resolved]
  - Chills [Unknown]

NARRATIVE: CASE EVENT DATE: 201710
